FAERS Safety Report 10297817 (Version 1)
Quarter: 2014Q3

REPORT INFORMATION
  Report Type: Spontaneous
  Country: US (occurrence: US)
  Receive Date: 20140711
  Receipt Date: 20140711
  Transmission Date: 20150326
  Serious: Yes (Other)
  Sender: FDA-Public Use
  Company Number: CHPA2014US009245

PATIENT
  Age: 91 Year
  Sex: Male

DRUGS (1)
  1. GAS-X [Suspect]
     Active Substance: DIMETHICONE
     Indication: FLATULENCE
     Dosage: 3 DF, QD
     Route: 048

REACTIONS (1)
  - Cerebrovascular accident [Recovering/Resolving]
